FAERS Safety Report 14450543 (Version 1)
Quarter: 2018Q1

REPORT INFORMATION
  Report Type: Spontaneous
  Country: FR (occurrence: FR)
  Receive Date: 20180129
  Receipt Date: 20180129
  Transmission Date: 20180509
  Serious: Yes (Other)
  Sender: FDA-Public Use
  Company Number: FR-MERCK KGAA-2040924

PATIENT
  Age: 67 Year
  Sex: Female
  Weight: 62 kg

DRUGS (9)
  1. OMEPRAZOLE. [Concomitant]
     Active Substance: OMEPRAZOLE
  2. XYZALL [Concomitant]
     Active Substance: LEVOCETIRIZINE DIHYDROCHLORIDE
  3. NOVOTHYROX [Suspect]
     Active Substance: LEVOTHYROXINE SODIUM
     Indication: HYPOTHYROIDISM
     Route: 048
     Dates: end: 20171029
  4. APROVEL [Concomitant]
     Active Substance: IRBESARTAN
  5. LYRICA [Concomitant]
     Active Substance: PREGABALIN
  6. TAHOR [Concomitant]
     Active Substance: ATORVASTATIN CALCIUM
  7. LIVIAL [Concomitant]
     Active Substance: TIBOLONE
  8. NIFLURIL [Concomitant]
     Active Substance: MORNIFLUMATE
  9. DAFALGAN [Concomitant]
     Active Substance: ACETAMINOPHEN

REACTIONS (10)
  - Gastrointestinal motility disorder [Not Recovered/Not Resolved]
  - Vomiting [Not Recovered/Not Resolved]
  - Irritability [Not Recovered/Not Resolved]
  - Balance disorder [Not Recovered/Not Resolved]
  - Headache [Not Recovered/Not Resolved]
  - Malaise [Not Recovered/Not Resolved]
  - Product formulation issue [Not Recovered/Not Resolved]
  - Pain [Not Recovered/Not Resolved]
  - Weight increased [Not Recovered/Not Resolved]
  - Abdominal pain [Not Recovered/Not Resolved]

NARRATIVE: CASE EVENT DATE: 201703
